FAERS Safety Report 9292283 (Version 1)
Quarter: 2013Q2

REPORT INFORMATION
  Report Type: Report from Study
  Country: US (occurrence: US)
  Receive Date: 20130516
  Receipt Date: 20130516
  Transmission Date: 20140414
  Serious: Yes (Other)
  Sender: FDA-Public Use
  Company Number: PHHY2013US048052

PATIENT
  Age: 44 Year
  Sex: Female

DRUGS (17)
  1. GILENYA [Suspect]
     Indication: MULTIPLE SCLEROSIS
     Dosage: 0.5 MG, QD
     Route: 048
     Dates: start: 20110823, end: 20111005
  2. GILENYA [Suspect]
     Dosage: 0.5 MG, QD
     Route: 048
  3. LASIX [Concomitant]
  4. NEURONTIN [Concomitant]
  5. PAXIL [Concomitant]
  6. REMERON [Concomitant]
  7. VICODIN [Concomitant]
  8. XANAX [Concomitant]
  9. ZANAFLEX [Concomitant]
  10. DULOXETINE [Concomitant]
     Dosage: 60 MG, UNK
     Route: 048
  11. GABAPENTIN [Concomitant]
     Dosage: 300 MG, UNK
     Route: 048
  12. BACLOFEN [Concomitant]
     Dosage: 20 MG, UNK
     Route: 048
  13. TOPAMAX [Concomitant]
     Dosage: 50 MG, UNK
  14. TIZANIDINE [Concomitant]
     Dosage: 6 MG, UNK
     Route: 048
  15. ALPRAZOLAM [Concomitant]
     Dosage: 0.25 MG, UNK
     Route: 048
  16. CALCIUM + VITAMIN D [Concomitant]
     Dosage: 500 MG, UNK
     Route: 048
  17. HYDROCODONE/ACETAMINOPHEN [Concomitant]

REACTIONS (2)
  - Foot fracture [Unknown]
  - Fall [Unknown]
